FAERS Safety Report 24295865 (Version 2)
Quarter: 2024Q3

REPORT INFORMATION
  Report Type: Spontaneous
  Country: DE (occurrence: DE)
  Receive Date: 20240909
  Receipt Date: 20240916
  Transmission Date: 20241016
  Serious: Yes (Other)
  Sender: JOHNSON AND JOHNSON
  Company Number: None

PATIENT
  Age: 71 Year
  Sex: Male
  Weight: 89 kg

DRUGS (5)
  1. ERLEADA [Suspect]
     Active Substance: APALUTAMIDE
     Indication: Prostate cancer
     Dosage: 4 X THE
     Route: 048
     Dates: start: 202207
  2. MIRABEGRON [Concomitant]
     Active Substance: MIRABEGRON
     Indication: Bladder pain
     Dosage: 1X AM TAG
     Route: 065
  3. OLMESARTAN MEDOXOMIL [Concomitant]
     Active Substance: OLMESARTAN MEDOXOMIL
     Indication: Product used for unknown indication
     Route: 065
  4. ATORVASTATIN [Concomitant]
     Active Substance: ATORVASTATIN
     Indication: Product used for unknown indication
     Route: 065
  5. ASPIRIN [Concomitant]
     Active Substance: ASPIRIN
     Indication: Product used for unknown indication
     Route: 065

REACTIONS (4)
  - Sudden hearing loss [Not Recovered/Not Resolved]
  - Deafness [Not Recovered/Not Resolved]
  - Coronary artery disease [Unknown]
  - Angina pectoris [Unknown]

NARRATIVE: CASE EVENT DATE: 20230101
